FAERS Safety Report 20024418 (Version 2)
Quarter: 2024Q4

REPORT INFORMATION
  Report Type: Spontaneous
  Country: PT (occurrence: PT)
  Receive Date: 20211102
  Receipt Date: 20241220
  Transmission Date: 20250115
  Serious: Yes (Hospitalization)
  Sender: ROCHE
  Company Number: PT-BoehringerIngelheim-2021-BI-133329

PATIENT
  Age: 77 Year
  Sex: Male

DRUGS (1)
  1. METALYSE [Suspect]
     Active Substance: TENECTEPLASE
     Indication: Pulmonary embolism
     Dosage: TAKEN ONCE/1 IN 1 TOTAL
     Route: 065

REACTIONS (3)
  - Hepatic haematoma [Recovering/Resolving]
  - Hepatic artery aneurysm [Recovering/Resolving]
  - Shock haemorrhagic [Recovering/Resolving]
